FAERS Safety Report 12506795 (Version 1)
Quarter: 2016Q2

REPORT INFORMATION
  Report Type: Spontaneous
  Country: IR (occurrence: IR)
  Receive Date: 20160628
  Receipt Date: 20160628
  Transmission Date: 20160815
  Serious: Yes (Other)
  Sender: FDA-Public Use
  Company Number: IR-BEH-2016070619

PATIENT
  Sex: Female
  Weight: 78 kg

DRUGS (1)
  1. HAEMATE [Suspect]
     Active Substance: ANTIHEMOPHILIC FACTOR HUMAN
     Indication: HAEMOPHILIA
     Dosage: UNK
     Route: 065
     Dates: start: 2006, end: 2012

REACTIONS (1)
  - Von Willebrand^s factor inhibition [Recovered/Resolved]

NARRATIVE: CASE EVENT DATE: 2012
